FAERS Safety Report 5935765-0 (Version None)
Quarter: 2008Q4

REPORT INFORMATION
  Report Type: 
  Country: None (occurrence: None)
  Receive Date: 20081029
  Receipt Date: 20081029
  Transmission Date: 20090506
  Serious: Yes (Life-Threatening, Hospitalization, Other)
  Sender: FDA-Public Use
  Company Number: None

PATIENT
  Age: 75 Year
  Sex: Male
  Weight: 60.8 kg

DRUGS (1)
  1. PHENYTOIN [Suspect]
     Indication: CONVULSION
     Dosage: 430 MG AT BEDTIME PO
     Route: 048
     Dates: start: 20080423, end: 20081002

REACTIONS (13)
  - BLOOD CREATINE PHOSPHOKINASE INCREASED [None]
  - CEREBRAL ATROPHY [None]
  - CEREBRAL HAEMORRHAGE [None]
  - CONFUSIONAL STATE [None]
  - DEPRESSED LEVEL OF CONSCIOUSNESS [None]
  - ENCEPHALOMALACIA [None]
  - INCONTINENCE [None]
  - INTRACRANIAL PRESSURE INCREASED [None]
  - MENTAL STATUS CHANGES [None]
  - PERIVENTRICULAR LEUKOMALACIA [None]
  - SEDATION [None]
  - SOMNOLENCE [None]
  - SPEECH DISORDER [None]
